FAERS Safety Report 5004822-8 (Version None)
Quarter: 2006Q2

REPORT INFORMATION
  Report Type: 
  Country: None (occurrence: None)
  Receive Date: 20060517
  Receipt Date: 20050112
  Transmission Date: 20061013
  Serious: Yes (Hospitalization, Disabling)
  Sender: FDA-Public Use
  Company Number: US-MERCK-0501USA02358

PATIENT
  Age: 58 Year
  Sex: Female
  Weight: 78 kg

DRUGS (1)
  1. VIOXX [Suspect]
     Indication: OSTEOARTHRITIS
     Route: 048
     Dates: start: 20040501, end: 20040908

REACTIONS (5)
  - ARTHRITIS [None]
  - CEREBROVASCULAR ACCIDENT [None]
  - DIABETES MELLITUS [None]
  - HYPERLIPIDAEMIA [None]
  - HYPERTENSION [None]
